FAERS Safety Report 13939788 (Version 1)
Quarter: 2017Q3

REPORT INFORMATION
  Report Type: Spontaneous
  Country: US (occurrence: US)
  Receive Date: 20170906
  Receipt Date: 20170906
  Transmission Date: 20171127
  Serious: Yes (Disabling, Other)
  Sender: FDA-Public Use
  Company Number: None

PATIENT
  Age: 70 Year
  Sex: Female
  Weight: 65.25 kg

DRUGS (6)
  1. DUREZOL [Suspect]
     Active Substance: DIFLUPREDNATE
     Indication: OPHTHALMIC HERPES SIMPLEX
     Route: 047
     Dates: start: 20170131, end: 20170731
  2. PRAVASTATIN SODIUM. [Concomitant]
     Active Substance: PRAVASTATIN SODIUM
  3. LOSARTAN. [Concomitant]
     Active Substance: LOSARTAN
  4. REFRESH OPTIVE MEGA-3 LUBRICANT [Concomitant]
  5. POTASSIUM [Concomitant]
     Active Substance: POTASSIUM
  6. ALPRAZOLAM. [Concomitant]
     Active Substance: ALPRAZOLAM

REACTIONS (5)
  - Drug ineffective [None]
  - Depression [None]
  - Impaired driving ability [None]
  - Vision blurred [None]
  - Visual acuity reduced [None]

NARRATIVE: CASE EVENT DATE: 20170228
